FAERS Safety Report 5744684-4 (Version None)
Quarter: 2008Q2

REPORT INFORMATION
  Report Type: 
  Country: None (occurrence: None)
  Receive Date: 20080520
  Receipt Date: 20080509
  Transmission Date: 20081010
  Serious: Yes (Hospitalization)
  Sender: FDA-Public Use
  Company Number: AU-ABBOTT-08P-008-0442781-00

PATIENT
  Sex: Male
  Weight: 80 kg

DRUGS (8)
  1. LIPIDIL [Suspect]
     Indication: DRUG USE FOR UNKNOWN INDICATION
     Route: 048
  2. LIPIDIL [Suspect]
     Dosage: 145MG, 24 TABLETS ONCE
     Route: 048
     Dates: start: 20080305, end: 20080305
  3. ANHIBA [Suspect]
     Indication: DRUG USE FOR UNKNOWN INDICATION
     Dosage: 500MG, 24 TABLETS
     Route: 065
     Dates: start: 20080305, end: 20080305
  4. IBUPROFEN TABLETS [Suspect]
     Indication: DRUG USE FOR UNKNOWN INDICATION
     Dosage: 200/400, 12 TABLETS
     Route: 065
     Dates: start: 20080305, end: 20080305
  5. ROSUVASTATIN [Suspect]
     Indication: DRUG USE FOR UNKNOWN INDICATION
     Route: 048
  6. ROSUVASTATIN [Suspect]
     Dosage: 5MG, 12 TABLETS ONCE
     Route: 048
     Dates: start: 20080305, end: 20080305
  7. ROSUVASTATIN [Suspect]
     Route: 048
     Dates: start: 20080407
  8. ACETYLSALICYLATE CALCIUM [Concomitant]
     Indication: MYOCARDIAL ISCHAEMIA
     Dosage: 150 MG DAILY
     Route: 048

REACTIONS (4)
  - BLOOD CREATINE PHOSPHOKINASE INCREASED [None]
  - BLOOD CREATININE INCREASED [None]
  - GAMMA-GLUTAMYLTRANSFERASE INCREASED [None]
  - INTENTIONAL OVERDOSE [None]
